FAERS Safety Report 11936159 (Version 1)
Quarter: 2016Q1

REPORT INFORMATION
  Report Type: Spontaneous
  Country: US (occurrence: US)
  Receive Date: 20160121
  Receipt Date: 20160121
  Transmission Date: 20160526
  Serious: No
  Sender: FDA-Public Use
  Company Number: US-AMGEN-USASP2015140575

PATIENT
  Age: 71 Year
  Sex: Female

DRUGS (1)
  1. KYPROLIS [Suspect]
     Active Substance: CARFILZOMIB
     Indication: PLASMA CELL MYELOMA
     Dosage: 54 MG/M2, QWK
     Route: 065
     Dates: start: 20151118

REACTIONS (3)
  - Erythema [Unknown]
  - Inflammation [Unknown]
  - Extravasation [Unknown]

NARRATIVE: CASE EVENT DATE: 201512
